FAERS Safety Report 25166749 (Version 2)
Quarter: 2025Q2

REPORT INFORMATION
  Report Type: Report from Study
  Country: GB (occurrence: GB)
  Receive Date: 20250407
  Receipt Date: 20250415
  Transmission Date: 20250717
  Serious: Yes (Other)
  Sender: SANDOZ
  Company Number: GB-SANDOZ-SDZ2025GB019358

PATIENT
  Sex: Female

DRUGS (1)
  1. ERELZI [Suspect]
     Active Substance: ETANERCEPT-SZZS
     Indication: Ankylosing spondylitis
     Dosage: 50 MG, QW
     Route: 058
     Dates: start: 20250317

REACTIONS (9)
  - Syncope [Unknown]
  - Fear of injection [Unknown]
  - Oropharyngeal pain [Recovered/Resolved]
  - Asthenopia [Recovered/Resolved]
  - Eye movement disorder [Unknown]
  - Dizziness [Recovering/Resolving]
  - Fatigue [Unknown]
  - Injection site reaction [Recovering/Resolving]
  - Inappropriate schedule of product administration [Unknown]

NARRATIVE: CASE EVENT DATE: 20250101
